FAERS Safety Report 7561834-8 (Version None)
Quarter: 2011Q2

REPORT INFORMATION
  Report Type: 
  Country: None (occurrence: None)
  Receive Date: 20110621
  Receipt Date: 20110617
  Transmission Date: 20111010
  Serious: Yes (Other)
  Sender: FDA-Public Use
  Company Number: US-AMGEN LTD.-USASP2010000198

PATIENT
  Age: 82 Year
  Sex: Male

DRUGS (4)
  1. NPLATE [Suspect]
     Indication: IDIOPATHIC THROMBOCYTOPENIC PURPURA
     Dosage: 335 A?G, UNK
     Dates: start: 20090918, end: 20091120
  2. NPLATE [Suspect]
     Dates: start: 20090918, end: 20091120
  3. CORTICOSTEROIDS [Concomitant]
     Dosage: UNK
     Dates: start: 20090907
  4. RITUXIMAB [Concomitant]
     Dosage: 335 A?G/KG, UNK
     Dates: start: 20090912

REACTIONS (4)
  - THROMBOSIS [None]
  - PLATELET COUNT INCREASED [None]
  - EMBOLISM [None]
  - CEREBRAL INFARCTION [None]
